FAERS Safety Report 9314275 (Version 2)
Quarter: 2013Q2

REPORT INFORMATION
  Report Type: Spontaneous
  Country: GB (occurrence: GB)
  Receive Date: 20130522
  Receipt Date: 20130522
  Transmission Date: 20140414
  Serious: Yes (Hospitalization)
  Sender: FDA-Public Use
  Company Number: 2012SGN00576

PATIENT
  Age: 52 Year
  Sex: Female

DRUGS (10)
  1. BRENTUXIMAB VEDOTIN [Suspect]
     Indication: ANAPLASTIC LARGE-CELL LYMPHOMA
     Dosage: Q21D
     Route: 042
     Dates: start: 20120216, end: 20121116
  2. CYCLOPHOSPHAMIDE [Suspect]
     Indication: ANAPLASTIC LARGE-CELL LYMPHOMA
     Dates: start: 20120328
  3. DOXORUBICIN (DOXORUBICIN) (DOXORUBICIN) [Suspect]
     Indication: ANAPLASTIC LARGE-CELL LYMPHOMA
     Dates: start: 20120328
  4. VINCRISTINE (VINCRISTINE) (UNKNOWN) [Suspect]
     Indication: ANAPLASTIC LARGE-CELL LYMPHOMA
     Dates: start: 20120328
  5. PREDNISONE [Suspect]
     Indication: ANAPLASTIC LARGE-CELL LYMPHOMA
     Dates: start: 20120328
  6. MUCAINE (ALUMINUM HYDROXIDE GEL, MAGNESIUM HYDROXIDE, OXETACAINE) [Concomitant]
  7. SODIUM CHLORIDE [Concomitant]
  8. NYSTATIN (NYSTATIN) [Concomitant]
  9. DOMPERIDONE (DOMPERIDONE) [Concomitant]
  10. BETNOVATE A (BETAMETHASONE VALERAE, CHLORTETRACYCLINE HYDROCHLORIDE) [Concomitant]

REACTIONS (6)
  - Sepsis [None]
  - Tachycardia [None]
  - Hypotension [None]
  - Pyrexia [None]
  - Culture positive [None]
  - Staphylococcus test positive [None]
